FAERS Safety Report 9640798 (Version 2)
Quarter: 2013Q4

REPORT INFORMATION
  Report Type: Report from Study
  Country: US (occurrence: US)
  Receive Date: 20131023
  Receipt Date: 20131023
  Transmission Date: 20140711
  Serious: No
  Sender: FDA-Public Use
  Company Number: US-ABBVIE-13P-163-1075605-00

PATIENT
  Age: 31 Year
  Sex: Female

DRUGS (2)
  1. LUPRON DEPOT [Suspect]
     Indication: ENDOMETRIOSIS
     Route: 050
     Dates: start: 20130309
  2. NORETHINDRONE ACETATE [Concomitant]
     Indication: PRODUCT USED FOR UNKNOWN INDICATION
     Route: 048
     Dates: start: 20130309

REACTIONS (8)
  - Abdominal pain [Recovering/Resolving]
  - Pelvic pain [Not Recovered/Not Resolved]
  - Injection site bruising [Unknown]
  - Oedema peripheral [Not Recovered/Not Resolved]
  - Capillary fragility [Not Recovered/Not Resolved]
  - Gait disturbance [Unknown]
  - Sinusitis [Recovered/Resolved]
  - Endometriosis [Not Recovered/Not Resolved]
